FAERS Safety Report 7194363-4 (Version None)
Quarter: 2010Q4

REPORT INFORMATION
  Report Type: 
  Country: None (occurrence: None)
  Receive Date: 20101223
  Receipt Date: 20101214
  Transmission Date: 20110411
  Serious: Yes (Hospitalization)
  Sender: FDA-Public Use
  Company Number: JP-ROCHE-742548

PATIENT
  Sex: Male

DRUGS (30)
  1. AVASTIN [Suspect]
     Indication: RECTAL CANCER METASTATIC
     Route: 041
     Dates: start: 20081210, end: 20090522
  2. AVASTIN [Suspect]
     Route: 041
     Dates: start: 20100426, end: 20100524
  3. AVASTIN [Suspect]
     Route: 041
     Dates: start: 20100614, end: 20100922
  4. FLUOROURACIL [Suspect]
     Indication: RECTAL CANCER METASTATIC
     Dosage: NOTE: DOSAGE IS UNCERTAIN.
     Route: 040
     Dates: start: 20081029, end: 20090612
  5. FLUOROURACIL [Suspect]
     Route: 040
     Dates: start: 20090928, end: 20100118
  6. FLUOROURACIL [Suspect]
     Route: 040
     Dates: start: 20100201, end: 20100412
  7. FLUOROURACIL [Suspect]
     Route: 040
     Dates: start: 20100426, end: 20100524
  8. FLUOROURACIL [Suspect]
     Route: 040
     Dates: start: 20100101, end: 20100922
  9. FLUOROURACIL [Suspect]
     Dosage: NOTE: DOSAGE IS UNCERTAIN.
     Route: 041
     Dates: start: 20081029, end: 20090601
  10. FLUOROURACIL [Suspect]
     Route: 041
     Dates: start: 20090929, end: 20100101
  11. FLUOROURACIL [Suspect]
     Route: 041
     Dates: start: 20100201, end: 20100401
  12. FLUOROURACIL [Suspect]
     Route: 041
     Dates: start: 20100426, end: 20100501
  13. FLUOROURACIL [Suspect]
     Route: 041
     Dates: start: 20100101, end: 20100924
  14. ELPLAT [Suspect]
     Indication: RECTAL CANCER METASTATIC
     Route: 041
     Dates: start: 20090928, end: 20100118
  15. ELPLAT [Suspect]
     Route: 041
     Dates: start: 20100426, end: 20100524
  16. TOPOTECAN [Concomitant]
     Dosage: NOTE: DOSAGE IS UNCERTAIN. DRUG:IRINOTECAN HYDROCHLORIDE(IRINOTECAN HYDROCHLORIDE)
     Route: 041
     Dates: start: 20081029, end: 20090522
  17. TOPOTECAN [Concomitant]
     Route: 041
     Dates: start: 20100614, end: 20100922
  18. LEVOFOLINATE [Concomitant]
     Route: 041
     Dates: start: 20081029, end: 20090612
  19. LEVOFOLINATE [Concomitant]
     Dosage: DOSAGE IS UNCERTAIN
     Route: 041
     Dates: start: 20090928, end: 20100118
  20. LEVOFOLINATE [Concomitant]
     Route: 041
     Dates: start: 20100201, end: 20100412
  21. LEVOFOLINATE [Concomitant]
     Route: 041
     Dates: start: 20100426, end: 20100524
  22. LEVOFOLINATE [Concomitant]
     Dosage: DOSAGE IS UNCERTAIN
     Route: 041
     Dates: start: 20100614, end: 20100922
  23. LEVOFOLINATE [Concomitant]
     Route: 041
     Dates: start: 20100101, end: 20100922
  24. GRANISETRON HYDROCHLORIDE [Concomitant]
     Dosage: ROUTE: INTRAVENOUS (NOT OTHERWISE SPECIFIED).
     Route: 042
     Dates: start: 20081029, end: 20100922
  25. DECADRON [Concomitant]
     Route: 042
     Dates: start: 20081029, end: 20100922
  26. DECADRON [Concomitant]
     Route: 048
     Dates: start: 20081030, end: 20100924
  27. DIOVAN [Concomitant]
     Route: 048
     Dates: end: 20101012
  28. CALSLOT [Concomitant]
     Route: 048
     Dates: end: 20101012
  29. EBRANTIL [Concomitant]
     Route: 048
     Dates: start: 20100712, end: 20101012
  30. BUFFERIN [Concomitant]
     Route: 048
     Dates: start: 20100726, end: 20101012

REACTIONS (2)
  - ANAPHYLACTOID REACTION [None]
  - CONGESTIVE CARDIOMYOPATHY [None]
